FAERS Safety Report 25100309 (Version 1)
Quarter: 2025Q1

REPORT INFORMATION
  Report Type: Spontaneous
  Country: FR (occurrence: FR)
  Receive Date: 20250320
  Receipt Date: 20250320
  Transmission Date: 20250409
  Serious: Yes (Other)
  Sender: ABBVIE
  Company Number: None

PATIENT
  Age: 26 Year
  Sex: Female
  Weight: 79 kg

DRUGS (1)
  1. HUMIRA [Suspect]
     Active Substance: ADALIMUMAB
     Indication: Hidradenitis
     Dosage: HUMIRA 80 MG
     Route: 058
     Dates: start: 20240213

REACTIONS (2)
  - Paradoxical psoriasis [Not Recovered/Not Resolved]
  - Seborrhoeic dermatitis [Not Recovered/Not Resolved]

NARRATIVE: CASE EVENT DATE: 20250101
